FAERS Safety Report 8230404-0 (Version None)
Quarter: 2012Q1

REPORT INFORMATION
  Report Type: 
  Country: None (occurrence: None)
  Receive Date: 20120322
  Receipt Date: 20120322
  Transmission Date: 20120608
  Serious: No
  Sender: FDA-Public Use
  Company Number: None

PATIENT

DRUGS (2)
  1. ETHAVERINE [Suspect]
  2. ETRAVIRINE [Suspect]

REACTIONS (5)
  - PRODUCT NAME CONFUSION [None]
  - INTERCEPTED DRUG DISPENSING ERROR [None]
  - DRUG PRESCRIBING ERROR [None]
  - CIRCUMSTANCE OR INFORMATION CAPABLE OF LEADING TO MEDICATION ERROR [None]
  - PRODUCT PHYSICAL ISSUE [None]
